FAERS Safety Report 4485390-6 (Version None)
Quarter: 2004Q4

REPORT INFORMATION
  Report Type: 
  Country: None (occurrence: None)
  Receive Date: 20041021
  Receipt Date: 20041012
  Transmission Date: 20050328
  Serious: Yes (Life-Threatening)
  Sender: FDA-Public Use
  Company Number: MK200410-0098-1

PATIENT
  Age: 66 Year
  Sex: Female

DRUGS (2)
  1. OPTIRAY 160 [Suspect]
     Indication: CATHETERISATION CARDIAC
     Dosage: ONCE , IA
     Route: 014
  2. PREDNISONE [Concomitant]

REACTIONS (2)
  - DISEASE RECURRENCE [None]
  - STEVENS-JOHNSON SYNDROME [None]
